FAERS Safety Report 14463685 (Version 1)
Quarter: 2018Q1

REPORT INFORMATION
  Report Type: Spontaneous
  Country: HU (occurrence: HU)
  Receive Date: 20180130
  Receipt Date: 20180130
  Transmission Date: 20180509
  Serious: Yes (Other)
  Sender: FDA-Public Use
  Company Number: HU-GLAXOSMITHKLINE-HU2018GSK015717

PATIENT
  Age: 62 Year
  Sex: Female

DRUGS (1)
  1. DICLOFENAC [Suspect]
     Active Substance: DICLOFENAC
     Indication: OSTEOARTHRITIS
     Dosage: 75 MG, QD
     Route: 048

REACTIONS (5)
  - Glomerular filtration rate decreased [Unknown]
  - Peripheral swelling [Unknown]
  - Overdose [Unknown]
  - Intentional product misuse [Unknown]
  - Blood pressure increased [Unknown]
